FAERS Safety Report 12701837 (Version 1)
Quarter: 2016Q3

REPORT INFORMATION
  Report Type: Spontaneous
  Country: US (occurrence: US)
  Receive Date: 20160831
  Receipt Date: 20160831
  Transmission Date: 20161109
  Serious: No
  Sender: FDA-Public Use
  Company Number: US-JAZZ-2016-US-007626

PATIENT
  Sex: Female

DRUGS (34)
  1. CRESTOR [Concomitant]
     Active Substance: ROSUVASTATIN CALCIUM
  2. FENOFIBRATE. [Concomitant]
     Active Substance: FENOFIBRATE
  3. LOVAZA [Concomitant]
     Active Substance: OMEGA-3-ACID ETHYL ESTERS
  4. NUVIGIL [Concomitant]
     Active Substance: ARMODAFINIL
  5. LISINOPRIL. [Concomitant]
     Active Substance: LISINOPRIL
  6. PROBIOTIC [Concomitant]
     Active Substance: PROBIOTICS NOS
  7. CLONAZEPAM. [Concomitant]
     Active Substance: CLONAZEPAM
  8. PATANASE [Concomitant]
     Active Substance: OLOPATADINE HYDROCHLORIDE
  9. TRULICITY [Concomitant]
     Active Substance: DULAGLUTIDE
  10. IBUPROFEN. [Concomitant]
     Active Substance: IBUPROFEN
  11. ASPIRIN. [Concomitant]
     Active Substance: ASPIRIN
  12. IPRATROPIUM/ALBUTEROL [Concomitant]
     Active Substance: ALBUTEROL\IPRATROPIUM
  13. LANTUS [Concomitant]
     Active Substance: INSULIN GLARGINE
  14. IBUPROFEN. [Concomitant]
     Active Substance: IBUPROFEN
  15. FLONASE [Concomitant]
     Active Substance: FLUTICASONE PROPIONATE
  16. LORAZEPAM. [Concomitant]
     Active Substance: LORAZEPAM
  17. LYRICA [Concomitant]
     Active Substance: PREGABALIN
  18. PROAIR HFA [Concomitant]
     Active Substance: ALBUTEROL SULFATE
  19. XYREM [Suspect]
     Active Substance: SODIUM OXYBATE
     Indication: CATAPLEXY
     Dosage: DOSE ADJUSTMENTS
     Route: 048
  20. XYREM [Suspect]
     Active Substance: SODIUM OXYBATE
     Dosage: 4.5 G, BID
     Route: 048
     Dates: start: 201501
  21. HYDROCODONE/ACETAMINOPHEN [Concomitant]
     Active Substance: ACETAMINOPHEN\HYDROCODONE
  22. NICOTINE. [Concomitant]
     Active Substance: NICOTINE
  23. CLINDAMYCIN HYDROCHLORIDE. [Concomitant]
     Active Substance: CLINDAMYCIN HYDROCHLORIDE
  24. HYDROCODONE/ACETAMINOPHEN [Concomitant]
     Active Substance: ACETAMINOPHEN\HYDROCODONE
  25. BYDUREON [Concomitant]
     Active Substance: EXENATIDE
  26. FLUOXETINE [Concomitant]
     Active Substance: FLUOXETINE HYDROCHLORIDE
  27. INVOKANA [Concomitant]
     Active Substance: CANAGLIFLOZIN
  28. TRULICITY [Concomitant]
     Active Substance: DULAGLUTIDE
  29. XYREM [Suspect]
     Active Substance: SODIUM OXYBATE
     Indication: NARCOLEPSY
     Dosage: 2.25 G, BID
     Route: 048
     Dates: start: 201412, end: 201412
  30. MIRAPEX [Concomitant]
     Active Substance: PRAMIPEXOLE DIHYDROCHLORIDE
  31. PROVIGIL [Concomitant]
     Active Substance: MODAFINIL
  32. AMITIZA [Concomitant]
     Active Substance: LUBIPROSTONE
  33. METFORMIN HCL [Concomitant]
     Active Substance: METFORMIN HYDROCHLORIDE
  34. NAPROXEN. [Concomitant]
     Active Substance: NAPROXEN

REACTIONS (5)
  - Muscle twitching [Not Recovered/Not Resolved]
  - Bowel movement irregularity [Not Recovered/Not Resolved]
  - Dry mouth [Not Recovered/Not Resolved]
  - Abdominal distension [Not Recovered/Not Resolved]
  - Oedema [Not Recovered/Not Resolved]
